FAERS Safety Report 6735447-1 (Version None)
Quarter: 2010Q2

REPORT INFORMATION
  Report Type: 
  Country: None (occurrence: None)
  Receive Date: 20100521
  Receipt Date: 20100511
  Transmission Date: 20101027
  Serious: Yes (Other)
  Sender: FDA-Public Use
  Company Number: PHHY2009CA19230

PATIENT
  Sex: Male

DRUGS (8)
  1. EXJADE [Suspect]
     Indication: MYELODYSPLASTIC SYNDROME
     Dosage: 1750 MG, QD
     Dates: start: 20081203, end: 20100422
  2. EXJADE [Suspect]
     Indication: IRON OVERLOAD
     Dosage: 1500 MG, QD
     Dates: start: 20081214
  3. EXJADE [Suspect]
     Dosage: 1750 MG, QD
     Route: 048
     Dates: start: 20090101
  4. COUMADIN [Concomitant]
     Dosage: 5 MG, QD
  5. VIDAZA [Concomitant]
  6. WARFARIN SODIUM [Concomitant]
  7. LEVOTHYROXINE SODIUM [Concomitant]
     Dosage: 0.5 MG, QD
  8. PREDNISOLONE ACETATE [Concomitant]

REACTIONS (7)
  - BLOOD IRON INCREASED [None]
  - CONSTIPATION [None]
  - FALL [None]
  - GASTROENTERITIS VIRAL [None]
  - HEADACHE [None]
  - NECK PAIN [None]
  - RED BLOOD CELL ABNORMALITY [None]
